FAERS Safety Report 8405478-4 (Version None)
Quarter: 2012Q2

REPORT INFORMATION
  Report Type: 
  Country: None (occurrence: None)
  Receive Date: 20120604
  Receipt Date: 20120529
  Transmission Date: 20120825
  Serious: Yes (Death, Hospitalization)
  Sender: FDA-Public Use
  Company Number: US-BIOGENIDEC-2012BI016803

PATIENT
  Sex: Male

DRUGS (1)
  1. AVONEX [Suspect]
     Indication: MULTIPLE SCLEROSIS
     Route: 030

REACTIONS (10)
  - MOBILITY DECREASED [None]
  - GASTROINTESTINAL DISORDER [None]
  - URINARY INCONTINENCE [None]
  - OVERDOSE [None]
  - MULTIPLE SCLEROSIS [None]
  - URINARY TRACT INFECTION [None]
  - ABASIA [None]
  - TREMOR [None]
  - VOMITING [None]
  - DIARRHOEA [None]
